FAERS Safety Report 4335711-X (Version None)
Quarter: 2004Q2

REPORT INFORMATION
  Report Type: 
  Country: None (occurrence: None)
  Receive Date: 20040409
  Receipt Date: 20040329
  Transmission Date: 20050107
  Serious: Yes (Other)
  Sender: FDA-Public Use
  Company Number: JP-GLAXOSMITHKLINE-B0329277A

PATIENT
  Age: 45 Year
  Sex: Female

DRUGS (6)
  1. PAXIL [Suspect]
     Indication: DEPRESSION
     Route: 048
     Dates: start: 20030101, end: 20040301
  2. PAXIL [Suspect]
     Route: 048
  3. PAXIL [Suspect]
     Route: 048
     Dates: end: 20040301
  4. DOGMATYL [Concomitant]
     Route: 065
  5. LENDORM [Concomitant]
     Route: 048
  6. BENZALIN [Concomitant]
     Route: 048

REACTIONS (1)
  - SUICIDE ATTEMPT [None]
